FAERS Safety Report 15308499 (Version 6)
Quarter: 2019Q1

REPORT INFORMATION
  Report Type: Report from Study
  Country: US (occurrence: US)
  Receive Date: 20180822
  Receipt Date: 20190319
  Transmission Date: 20190417
  Serious: Yes (Death, Hospitalization)
  Sender: FDA-Public Use
  Company Number: US-EISAI MEDICAL RESEARCH-EC-2018-039917

PATIENT
  Age: 75 Year
  Sex: Female
  Weight: 51.5 kg

DRUGS (26)
  1. EVEROLIMUS. [Suspect]
     Active Substance: EVEROLIMUS
     Route: 048
     Dates: start: 20180927, end: 20181018
  2. OTC DRY EYES DROPS [Concomitant]
  3. ATROPINE- DIPHENOXYLATE [Concomitant]
  4. EVEROLIMUS. [Suspect]
     Active Substance: EVEROLIMUS
     Route: 048
     Dates: start: 20180731, end: 20180914
  5. LEVOTHYROXINE. [Concomitant]
     Active Substance: LEVOTHYROXINE
  6. MEGESTROL [Concomitant]
     Active Substance: MEGESTROL
  7. LENVATINIB [Suspect]
     Active Substance: LENVATINIB
     Route: 048
     Dates: start: 20180510, end: 20180609
  8. LENVATINIB [Suspect]
     Active Substance: LENVATINIB
     Route: 048
     Dates: start: 20180702, end: 20180723
  9. LENVATINIB [Suspect]
     Active Substance: LENVATINIB
     Route: 048
     Dates: start: 20180405, end: 20180503
  10. LENVATINIB [Suspect]
     Active Substance: LENVATINIB
     Route: 048
     Dates: start: 20180927, end: 20181017
  11. LENVATINIB [Suspect]
     Active Substance: LENVATINIB
     Route: 048
     Dates: start: 20181030, end: 20181105
  12. LENVATINIB [Suspect]
     Active Substance: LENVATINIB
     Route: 048
     Dates: start: 20181109, end: 20181212
  13. EVEROLIMUS. [Suspect]
     Active Substance: EVEROLIMUS
     Route: 048
     Dates: start: 20180405, end: 20180503
  14. EVEROLIMUS. [Suspect]
     Active Substance: EVEROLIMUS
     Indication: PAPILLARY RENAL CELL CARCINOMA
     Route: 048
     Dates: start: 20180305, end: 20180401
  15. EVEROLIMUS. [Suspect]
     Active Substance: EVEROLIMUS
     Route: 048
     Dates: start: 20180702, end: 20180723
  16. EVEROLIMUS. [Suspect]
     Active Substance: EVEROLIMUS
     Route: 048
     Dates: start: 20180916, end: 20180916
  17. EVEROLIMUS. [Suspect]
     Active Substance: EVEROLIMUS
     Route: 048
     Dates: start: 20181030, end: 20181105
  18. EVEROLIMUS. [Suspect]
     Active Substance: EVEROLIMUS
     Route: 048
     Dates: start: 20181109, end: 20181212
  19. LENVATINIB [Suspect]
     Active Substance: LENVATINIB
     Route: 048
     Dates: start: 20180731, end: 20180914
  20. LACTULOSE. [Concomitant]
     Active Substance: LACTULOSE
  21. LENVATINIB [Suspect]
     Active Substance: LENVATINIB
     Indication: PAPILLARY RENAL CELL CARCINOMA
     Route: 048
     Dates: start: 20180305, end: 20180401
  22. EVEROLIMUS. [Suspect]
     Active Substance: EVEROLIMUS
     Route: 048
     Dates: start: 20180510, end: 20180609
  23. EVEROLIMUS. [Suspect]
     Active Substance: EVEROLIMUS
     Route: 048
     Dates: start: 20180611, end: 20180625
  24. MIRTAZAPINE. [Concomitant]
     Active Substance: MIRTAZAPINE
  25. LENVATINIB [Suspect]
     Active Substance: LENVATINIB
     Route: 048
     Dates: start: 20180611, end: 20180625
  26. LISINOPRIL. [Concomitant]
     Active Substance: LISINOPRIL

REACTIONS (9)
  - Altered state of consciousness [Unknown]
  - Coagulopathy [Unknown]
  - Fall [Recovering/Resolving]
  - Haematochezia [Recovered/Resolved]
  - Dizziness [Recovering/Resolving]
  - Diarrhoea [Recovered/Resolved]
  - Death [Fatal]
  - Confusional state [Recovering/Resolving]
  - Hepatic encephalopathy [Unknown]

NARRATIVE: CASE EVENT DATE: 20180506
